FAERS Safety Report 17680346 (Version 1)
Quarter: 2020Q2

REPORT INFORMATION
  Report Type: Spontaneous
  Country: US (occurrence: US)
  Receive Date: 20200417
  Receipt Date: 20200417
  Transmission Date: 20200714
  Serious: Yes (Hospitalization, Other)
  Sender: FDA-Public Use
  Company Number: US-BRISTOL-MYERS SQUIBB COMPANY-BMS-2020-031112

PATIENT
  Sex: Male
  Weight: 70.31 kg

DRUGS (1)
  1. ELIQUIS [Suspect]
     Active Substance: APIXABAN
     Indication: PULMONARY EMBOLISM
     Dosage: UNK
     Route: 065
     Dates: start: 201906, end: 201912

REACTIONS (4)
  - Haemorrhage [Unknown]
  - Contusion [Unknown]
  - Pneumonia [Unknown]
  - Haematoma [Unknown]
